FAERS Safety Report 22063162 (Version 9)
Quarter: 2025Q1

REPORT INFORMATION
  Report Type: Report from Study
  Country: US (occurrence: US)
  Receive Date: 20230306
  Receipt Date: 20250329
  Transmission Date: 20250409
  Serious: Yes (Other)
  Sender: TAKEDA
  Company Number: US-TAKEDA-2023TUS020864

PATIENT
  Age: 40 Year
  Sex: Female
  Weight: 142 kg

DRUGS (28)
  1. HUMAN IMMUNOGLOBULIN G\HYALURONIDASE RECOMBINANT HUMAN [Suspect]
     Active Substance: HUMAN IMMUNOGLOBULIN G\HYALURONIDASE (HUMAN RECOMBINANT)
     Indication: Hypergammaglobulinaemia
  2. HUMAN IMMUNOGLOBULIN G\HYALURONIDASE RECOMBINANT HUMAN [Suspect]
     Active Substance: HUMAN IMMUNOGLOBULIN G\HYALURONIDASE (HUMAN RECOMBINANT)
     Indication: Immune system disorder
     Dates: start: 20230224, end: 20230224
  3. HUMAN IMMUNOGLOBULIN G\HYALURONIDASE RECOMBINANT HUMAN [Suspect]
     Active Substance: HUMAN IMMUNOGLOBULIN G\HYALURONIDASE (HUMAN RECOMBINANT)
     Dates: start: 20230313, end: 20230313
  4. HUMAN IMMUNOGLOBULIN G\HYALURONIDASE RECOMBINANT HUMAN [Suspect]
     Active Substance: HUMAN IMMUNOGLOBULIN G\HYALURONIDASE (HUMAN RECOMBINANT)
  5. HUMAN IMMUNOGLOBULIN G\HYALURONIDASE RECOMBINANT HUMAN [Suspect]
     Active Substance: HUMAN IMMUNOGLOBULIN G\HYALURONIDASE (HUMAN RECOMBINANT)
     Dosage: 60 MILLIGRAM, Q4WEEKS
  6. HIZENTRA [Suspect]
     Active Substance: HUMAN IMMUNOGLOBULIN G
     Indication: Product used for unknown indication
  7. ACETAMINOPHEN [Concomitant]
     Active Substance: ACETAMINOPHEN
  8. SODIUM CHLORIDE [Concomitant]
     Active Substance: SODIUM CHLORIDE
  9. FAMOTIDINE [Concomitant]
     Active Substance: FAMOTIDINE
  10. DEXAMETHASONE [Concomitant]
     Active Substance: DEXAMETHASONE
  11. SYNTHROID [Concomitant]
     Active Substance: LEVOTHYROXINE SODIUM
  12. SINGULAIR [Concomitant]
     Active Substance: MONTELUKAST SODIUM
  13. PANTOPRAZOLE SODIUM [Concomitant]
     Active Substance: PANTOPRAZOLE SODIUM
  14. AZELASTINE HYDROCHLORIDE [Concomitant]
     Active Substance: AZELASTINE HYDROCHLORIDE
  15. CYTOMEL [Concomitant]
     Active Substance: LIOTHYRONINE SODIUM
  16. LIDOCAINE [Concomitant]
     Active Substance: LIDOCAINE
  17. TEZSPIRE [Concomitant]
     Active Substance: TEZEPELUMAB-EKKO
  18. Cyclafem 0.5/35 [Concomitant]
  19. DIPHENHYDRAMINE HYDROCHLORIDE [Concomitant]
     Active Substance: DIPHENHYDRAMINE HYDROCHLORIDE
  20. KLONOPIN [Concomitant]
     Active Substance: CLONAZEPAM
  21. QNASL [Concomitant]
     Active Substance: BECLOMETHASONE DIPROPIONATE
  22. BUTALBITAL, ACETAMINOPHEN, AND CAFFEINE [Concomitant]
     Active Substance: ACETAMINOPHEN\BUTALBITAL\CAFFEINE
  23. XYZAL [Concomitant]
     Active Substance: LEVOCETIRIZINE DIHYDROCHLORIDE
  24. ONDANSETRON HYDROCHLORIDE [Concomitant]
     Active Substance: ONDANSETRON HYDROCHLORIDE
  25. CORLANOR [Concomitant]
     Active Substance: IVABRADINE HYDROCHLORIDE
  26. CHOLESTYRAMINE [Concomitant]
     Active Substance: CHOLESTYRAMINE
  27. DIPHENHYDRAMINE [Concomitant]
     Active Substance: DIPHENHYDRAMINE
  28. EPINEPHRINE [Concomitant]
     Active Substance: EPINEPHRINE

REACTIONS (22)
  - Meningitis aseptic [Unknown]
  - Pain [Recovered/Resolved]
  - Asthenia [Not Recovered/Not Resolved]
  - Ulnar nerve injury [Recovered/Resolved]
  - Postural orthostatic tachycardia syndrome [Recovered/Resolved]
  - Sinus tachycardia [Recovered/Resolved]
  - Sinusitis [Unknown]
  - Infusion site discharge [Unknown]
  - Viral infection [Unknown]
  - Urinary tract infection [Unknown]
  - Obstruction [Unknown]
  - COVID-19 [Not Recovered/Not Resolved]
  - Inappropriate schedule of product administration [Unknown]
  - Nasopharyngitis [Unknown]
  - Gastroenteritis viral [Unknown]
  - Hypoaesthesia [Recovered/Resolved]
  - Pruritus [Unknown]
  - Infusion site induration [Unknown]
  - Burning sensation [Unknown]
  - Infusion site erythema [Unknown]
  - Fatigue [Recovered/Resolved]
  - Headache [Recovered/Resolved]

NARRATIVE: CASE EVENT DATE: 20230224
